FAERS Safety Report 21032778 (Version 1)
Quarter: 2022Q3

REPORT INFORMATION
  Report Type: Report from Study
  Country: IT (occurrence: IT)
  Receive Date: 20220701
  Receipt Date: 20220701
  Transmission Date: 20221027
  Serious: Yes (Other)
  Sender: FDA-Public Use
  Company Number: IT-SUN PHARMACEUTICAL INDUSTRIES LTD-2022R1-342565

PATIENT
  Age: 14 Year
  Sex: Male

DRUGS (2)
  1. DEXAMETHASONE [Suspect]
     Active Substance: DEXAMETHASONE
     Indication: Differentiation syndrome
     Dosage: 10 MILLIGRAM/SQ. METER, DAILY
     Route: 042
  2. HYDROXYUREA [Suspect]
     Active Substance: HYDROXYUREA
     Indication: Leukocytosis
     Dosage: (20-60MG/M2/DAY)UNK
     Route: 065

REACTIONS (1)
  - Therapy partial responder [Unknown]
